FAERS Safety Report 22194410 (Version 1)
Quarter: 2023Q2

REPORT INFORMATION
  Report Type: Spontaneous
  Country: PK (occurrence: PK)
  Receive Date: 20230411
  Receipt Date: 20230411
  Transmission Date: 20230721
  Serious: Yes (Other)
  Sender: FDA-Public Use
  Company Number: PK-STRIDES ARCOLAB LIMITED-2023SP004782

PATIENT
  Sex: Male

DRUGS (7)
  1. METHYLDOPA [Suspect]
     Active Substance: METHYLDOPA
     Indication: Product used for unknown indication
     Dosage: UNK (PATIENT^S MOTHER RECEIVED FOR HYPERTENSION)
     Route: 064
  2. METHYLDOPA [Suspect]
     Active Substance: METHYLDOPA
     Dosage: UNK (PATIENT^S MOTHER RECEIVED FOR HYPERTENSION, DOSE ADJUSTED)
     Route: 064
  3. METFORMIN [Suspect]
     Active Substance: METFORMIN HYDROCHLORIDE
     Indication: Product used for unknown indication
     Dosage: UNK (THE PATIENT^S MOTHER RECEIVED FOR DIABETES)
     Route: 064
  4. LEVOTHYROXINE [Suspect]
     Active Substance: LEVOTHYROXINE
     Indication: Product used for unknown indication
     Dosage: UNK (PATIENT^S MOTHER RECEIVED FOR SUBCLINICAL HYPOTHYROIDISM)
     Route: 064
  5. LEVOTHYROXINE [Suspect]
     Active Substance: LEVOTHYROXINE
     Dosage: UNK (PATIENT^S MOTHER RECEIVED FOR SUBCLINICAL HYPOTHYROIDISM, DOSE ADJUSTED)
     Route: 064
  6. INSULIN NOS [Suspect]
     Active Substance: INSULIN NOS
     Indication: Product used for unknown indication
     Dosage: UNK (THE PATIENT^S MOTHER RECEIVED FOR DIABETES, BASAL BOLUS REGIMEN)
     Route: 064
  7. INSULIN DETEMIR [Suspect]
     Active Substance: INSULIN DETEMIR
     Indication: Product used for unknown indication
     Dosage: UNK, (THE PATIENT^S MOTHER RECEIVED FOR DIABETES, BASAL BOLUS REGIMEN)
     Route: 064

REACTIONS (3)
  - Premature baby [Unknown]
  - Foetal distress syndrome [Unknown]
  - Foetal exposure during pregnancy [Unknown]
